FAERS Safety Report 17044158 (Version 3)
Quarter: 2019Q4

REPORT INFORMATION
  Report Type: Spontaneous
  Country: AR (occurrence: AR)
  Receive Date: 20191118
  Receipt Date: 20191206
  Transmission Date: 20200122
  Serious: Yes (Other)
  Sender: FDA-Public Use
  Company Number: AR-ELI_LILLY_AND_COMPANY-AR201911003906

PATIENT
  Sex: Female

DRUGS (1)
  1. FORTEO [Suspect]
     Active Substance: TERIPARATIDE
     Indication: OSTEOPOROSIS
     Dosage: 20 UG, DAILY
     Route: 058
     Dates: start: 201902, end: 20191016

REACTIONS (10)
  - Blood alkaline phosphatase increased [Unknown]
  - Fibromyalgia [Unknown]
  - Arthralgia [Recovering/Resolving]
  - Osteoarthritis [Unknown]
  - Headache [Recovering/Resolving]
  - Degenerative bone disease [Unknown]
  - Osteocalcin increased [Unknown]
  - Fatigue [Unknown]
  - Spinal compression fracture [Unknown]
  - Temporal arteritis [Unknown]
